FAERS Safety Report 9696981 (Version 11)
Quarter: 2016Q3

REPORT INFORMATION
  Report Type: Spontaneous
  Country: US (occurrence: US)
  Receive Date: 20131119
  Receipt Date: 20160810
  Transmission Date: 20161109
  Serious: Yes (Hospitalization)
  Sender: FDA-Public Use
  Company Number: US-ACTELION-A-NJ2013-87765

PATIENT
  Age: 37 Year
  Sex: Female

DRUGS (13)
  1. KCL [Concomitant]
     Active Substance: POTASSIUM CHLORIDE
  2. FLOLAN [Concomitant]
     Active Substance: EPOPROSTENOL SODIUM
  3. SPIRONOLACTONE. [Concomitant]
     Active Substance: SPIRONOLACTONE
  4. COUMADIN [Concomitant]
     Active Substance: WARFARIN SODIUM
  5. VELETRI [Suspect]
     Active Substance: EPOPROSTENOL
     Dosage: 53 NG/KG, PER MIN
     Route: 042
     Dates: start: 20120123
  6. LASIX [Concomitant]
     Active Substance: FUROSEMIDE
  7. VELETRI [Suspect]
     Active Substance: EPOPROSTENOL
     Indication: PULMONARY ARTERIAL HYPERTENSION
     Dosage: 62 NG/KG, PER MIN
     Route: 042
     Dates: start: 20120123
  8. OPSUMIT [Suspect]
     Active Substance: MACITENTAN
     Indication: PULMONARY ARTERIAL HYPERTENSION
     Dosage: 10 MG, QD
     Route: 048
     Dates: start: 20141020
  9. FLONASE [Concomitant]
     Active Substance: FLUTICASONE PROPIONATE
  10. REMODULIN [Concomitant]
     Active Substance: TREPROSTINIL
  11. ADCIRCA [Concomitant]
     Active Substance: TADALAFIL
  12. MULTIVITAMIN [Concomitant]
     Active Substance: VITAMINS
  13. OXYGEN. [Concomitant]
     Active Substance: OXYGEN

REACTIONS (11)
  - Palpitations [Recovered/Resolved]
  - Catheter management [Unknown]
  - Product deposit [Recovered/Resolved]
  - Dyspnoea [Recovered/Resolved]
  - Withdrawal syndrome [Recovered/Resolved]
  - Fatigue [Recovered/Resolved]
  - Device occlusion [Recovered/Resolved]
  - Sluggishness [Recovered/Resolved]
  - Device alarm issue [Recovered/Resolved]
  - Thrombosis in device [Unknown]
  - Underdose [Unknown]

NARRATIVE: CASE EVENT DATE: 20141105
